FAERS Safety Report 5884196-0 (Version None)
Quarter: 2008Q3

REPORT INFORMATION
  Report Type: 
  Country: None (occurrence: None)
  Receive Date: 20080915
  Receipt Date: 20080910
  Transmission Date: 20090109
  Serious: Yes (Death, Life-Threatening)
  Sender: FDA-Public Use
  Company Number: FR-ASTRAZENECA-2008CG01323

PATIENT
  Age: 30628 Day
  Sex: Male

DRUGS (6)
  1. CASODEX [Suspect]
     Route: 048
     Dates: start: 20080804, end: 20080820
  2. BACTRIM DS [Suspect]
     Route: 048
     Dates: start: 20080807, end: 20080820
  3. AMOXICILLIN [Suspect]
     Route: 042
     Dates: start: 20080807, end: 20080820
  4. DECAPEPTYL [Suspect]
     Route: 058
     Dates: start: 20080820
  5. LOXEN [Concomitant]
  6. MIOREL [Concomitant]

REACTIONS (2)
  - HYPOGLYCAEMIA [None]
  - HYPOTENSION [None]
